FAERS Safety Report 14150912 (Version 1)
Quarter: 2017Q4

REPORT INFORMATION
  Report Type: Spontaneous
  Country: US (occurrence: US)
  Receive Date: 20171102
  Receipt Date: 20171102
  Transmission Date: 20180321
  Serious: Yes (Other)
  Sender: FDA-Public Use
  Company Number: US-ACCORD-060421

PATIENT
  Sex: Female

DRUGS (8)
  1. IRINOTECAN [Suspect]
     Active Substance: IRINOTECAN
     Indication: CHOROID PLEXUS CARCINOMA
     Dates: start: 201209, end: 201211
  2. TEMODAR [Suspect]
     Active Substance: TEMOZOLOMIDE
     Indication: CHOROID PLEXUS CARCINOMA
     Dosage: FOR 5 DAYS
     Dates: start: 201209, end: 201211
  3. BEVACIZUMAB. [Suspect]
     Active Substance: BEVACIZUMAB
     Indication: CHOROID PLEXUS CARCINOMA
     Dates: start: 201209, end: 201211
  4. METHOTREXATE. [Suspect]
     Active Substance: METHOTREXATE
     Indication: CHOROID PLEXUS CARCINOMA
     Dates: start: 201212, end: 201301
  5. CARBOPLATIN. [Suspect]
     Active Substance: CARBOPLATIN
     Indication: CHOROID PLEXUS CARCINOMA
     Dates: start: 201303, end: 201307
  6. ETOPOSIDE. [Suspect]
     Active Substance: ETOPOSIDE
     Indication: CHOROID PLEXUS CARCINOMA
     Dates: start: 201303, end: 201307
  7. VINCRISTINE [Suspect]
     Active Substance: VINCRISTINE
     Indication: CHOROID PLEXUS CARCINOMA
     Dates: start: 201212, end: 201301
  8. IFOSFAMIDE. [Suspect]
     Active Substance: IFOSFAMIDE
     Indication: CHOROID PLEXUS CARCINOMA
     Dosage: 5 DAYS
     Dates: start: 201303, end: 201307

REACTIONS (6)
  - Nausea [Unknown]
  - Abscess [Unknown]
  - Decreased appetite [Unknown]
  - Off label use [Unknown]
  - Vomiting [Unknown]
  - Full blood count decreased [Unknown]

NARRATIVE: CASE EVENT DATE: 2012
